FAERS Safety Report 4839319-9 (Version None)
Quarter: 2005Q4

REPORT INFORMATION
  Report Type: 
  Country: None (occurrence: None)
  Receive Date: 20051031
  Receipt Date: 20050727
  Transmission Date: 20060501
  Serious: No
  Sender: FDA-Public Use
  Company Number: 200510763US

PATIENT
  Age: 25 Year
  Sex: Female

DRUGS (2)
  1. KETEK [Suspect]
  2. OTHER MEDICATIONS (NOS) [Concomitant]

REACTIONS (1)
  - VISUAL DISTURBANCE [None]
